FAERS Safety Report 6757844-0 (Version None)
Quarter: 2010Q2

REPORT INFORMATION
  Report Type: 
  Country: None (occurrence: None)
  Receive Date: 20100607
  Receipt Date: 20100601
  Transmission Date: 20101027
  Serious: Yes (Death)
  Sender: FDA-Public Use
  Company Number: PHHY2010DE30113

PATIENT
  Age: 72 Year
  Sex: Male

DRUGS (2)
  1. RITALIN [Suspect]
     Indication: NARCOLEPSY
     Dosage: 60 MG DAILY
     Route: 048
     Dates: start: 20050101
  2. RITALIN [Suspect]
     Dosage: 100-140 MG/DAILY
     Route: 048

REACTIONS (3)
  - DEATH [None]
  - DIZZINESS [None]
  - OVERDOSE [None]
